FAERS Safety Report 12155150 (Version 2)
Quarter: 2016Q2

REPORT INFORMATION
  Report Type: Report from Study
  Country: BR (occurrence: BR)
  Receive Date: 20160307
  Receipt Date: 20160427
  Transmission Date: 20160815
  Serious: Yes (Death)
  Sender: FDA-Public Use
  Company Number: BR-ACTELION-A-CH2016-132574

PATIENT
  Age: 6 Year
  Sex: Female

DRUGS (4)
  1. ZAVESCA [Suspect]
     Active Substance: MIGLUSTAT
     Indication: TAY-SACHS DISEASE
     Dosage: UNK
     Route: 048
     Dates: start: 2013
  2. PHENOBARBITAL. [Concomitant]
     Active Substance: PHENOBARBITAL
  3. CARBAMAZEPINE. [Concomitant]
     Active Substance: CARBAMAZEPINE
  4. PHENYTOIN. [Concomitant]
     Active Substance: PHENYTOIN

REACTIONS (2)
  - Disease progression [Fatal]
  - Tay-Sachs disease [Fatal]
